FAERS Safety Report 8552781-3 (Version None)
Quarter: 2012Q3

REPORT INFORMATION
  Report Type: 
  Country: None (occurrence: None)
  Receive Date: 20120731
  Receipt Date: 20120725
  Transmission Date: 20120928
  Serious: Yes (Other)
  Sender: FDA-Public Use
  Company Number: PHHY2010MX68538

PATIENT
  Age: 69 Year
  Sex: Female

DRUGS (6)
  1. ZOLEDRONOC ACID [Suspect]
     Indication: OSTEOPOROSIS
     Dosage: 5 MG, PER YEAR
     Route: 042
     Dates: start: 20090901
  2. GLUCOSAMINE [Concomitant]
     Indication: ARTHROPATHY
     Dosage: 1 DF, UNK
  3. ZOLEDRONOC ACID [Suspect]
     Dosage: 5 MG, PER YEAR
     Route: 042
  4. CALCIUM [Concomitant]
     Indication: BONE DISORDER
     Dosage: 1 DF, UNK
  5. ZOLEDRONOC ACID [Suspect]
     Dosage: 5 MG, PER YEAR
     Route: 042
  6. LOVAZA [Concomitant]

REACTIONS (9)
  - MALAISE [None]
  - COUGH [None]
  - FALL [None]
  - BLISTER [None]
  - MUSCULOSKELETAL PAIN [None]
  - INFLUENZA [None]
  - BREAST PAIN [None]
  - SKIN DISCOLOURATION [None]
  - PAIN [None]
